FAERS Safety Report 7112807-0 (Version None)
Quarter: 2010Q4

REPORT INFORMATION
  Report Type: 
  Country: None (occurrence: None)
  Receive Date: 20101119
  Receipt Date: 20101110
  Transmission Date: 20110411
  Serious: Yes (Other)
  Sender: FDA-Public Use
  Company Number: GB-JNJFOC-20101103914

PATIENT
  Age: 70 Year
  Sex: Female
  Weight: 67 kg

DRUGS (3)
  1. REMICADE [Suspect]
     Indication: RHEUMATOID ARTHRITIS
     Route: 042
  2. METHOTREXATE [Concomitant]
  3. HYDROXYCHLOROQUINE SULFATE [Concomitant]

REACTIONS (1)
  - CARCINOMA IN SITU OF SKIN [None]
